FAERS Safety Report 4426333-0 (Version None)
Quarter: 2004Q3

REPORT INFORMATION
  Report Type: 
  Country: None (occurrence: None)
  Receive Date: 20040811
  Receipt Date: 20040729
  Transmission Date: 20050211
  Serious: Yes (Hospitalization, Other)
  Sender: FDA-Public Use
  Company Number: 2004223850JP

PATIENT
  Age: 50 Year
  Sex: Male
  Weight: 91 kg

DRUGS (1)
  1. DOSTINEX [Suspect]
     Indication: ACROMEGALY
     Dosage: 0.5 MG, WEEKLY, ORAL
     Route: 048
     Dates: start: 20020928, end: 20021004

REACTIONS (2)
  - CEREBROSPINAL FLUID LEAKAGE [None]
  - RHINORRHOEA [None]
